FAERS Safety Report 19272715 (Version 10)
Quarter: 2022Q1

REPORT INFORMATION
  Report Type: Spontaneous
  Country: HU (occurrence: HU)
  Receive Date: 20210518
  Receipt Date: 20220209
  Transmission Date: 20220423
  Serious: Yes (Hospitalization)
  Sender: FDA-Public Use
  Company Number: HU-TAKEDA-2021TUS024587

PATIENT
  Age: 71 Year
  Sex: Male

DRUGS (23)
  1. MIDAZOLAM [Suspect]
     Active Substance: MIDAZOLAM
     Indication: Respiratory failure
     Route: 065
  2. MIDAZOLAM [Suspect]
     Active Substance: MIDAZOLAM
     Indication: Endotracheal intubation
  3. PANTOPRAZOLE [Suspect]
     Active Substance: PANTOPRAZOLE
     Indication: Respiratory failure
     Dosage: UNK
     Route: 065
  4. PANTOPRAZOLE [Suspect]
     Active Substance: PANTOPRAZOLE
     Indication: Endotracheal intubation
  5. AMOXICILLIN\CLAVULANIC ACID [Suspect]
     Active Substance: AMOXICILLIN\CLAVULANIC ACID
     Indication: COVID-19 treatment
     Dosage: UNK
     Route: 065
  6. METHYLPREDNISOLONE [Suspect]
     Active Substance: METHYLPREDNISOLONE
     Indication: Respiratory failure
     Dosage: UNK
     Route: 065
  7. METHYLPREDNISOLONE [Suspect]
     Active Substance: METHYLPREDNISOLONE
     Indication: Endotracheal intubation
  8. PROPOFOL [Suspect]
     Active Substance: PROPOFOL
     Indication: Respiratory failure
     Dosage: UNK
     Route: 065
  9. PROPOFOL [Suspect]
     Active Substance: PROPOFOL
     Indication: Endotracheal intubation
  10. SUFENTANIL [Suspect]
     Active Substance: SUFENTANIL
     Indication: Respiratory failure
     Dosage: UNK
     Route: 065
  11. SUFENTANIL [Suspect]
     Active Substance: SUFENTANIL
     Indication: Endotracheal intubation
  12. SUCCINYLCHOLINE [Suspect]
     Active Substance: SUCCINYLCHOLINE
     Indication: Respiratory failure
     Dosage: UNK
     Route: 065
  13. SUCCINYLCHOLINE [Suspect]
     Active Substance: SUCCINYLCHOLINE
     Indication: Endotracheal intubation
  14. SUCCINYLCHOLINE [Suspect]
     Active Substance: SUCCINYLCHOLINE
     Indication: Endotracheal intubation
  15. NOREPINEPHRINE [Suspect]
     Active Substance: NOREPINEPHRINE
     Indication: Cardiovascular insufficiency
     Dosage: UNK
     Route: 065
  16. NOREPINEPHRINE [Suspect]
     Active Substance: NOREPINEPHRINE
     Indication: Promotion of peripheral circulation
  17. NOREPINEPHRINE [Suspect]
     Active Substance: NOREPINEPHRINE
     Indication: Supportive care
  18. FAVIPIRAVIR [Suspect]
     Active Substance: FAVIPIRAVIR
     Indication: COVID-19 treatment
     Dosage: UNK
     Route: 065
  19. FAVIPIRAVIR [Suspect]
     Active Substance: FAVIPIRAVIR
     Indication: Antiviral treatment
  20. AZITHROMYCIN [Suspect]
     Active Substance: AZITHROMYCIN
     Indication: COVID-19 treatment
     Dosage: UNK
     Route: 065
  21. PIPERACILLIN [Suspect]
     Active Substance: PIPERACILLIN
     Indication: COVID-19 treatment
     Dosage: UNK
     Route: 065
  22. TAZOBACTAM [Suspect]
     Active Substance: TAZOBACTAM
     Indication: COVID-19 treatment
     Route: 065
  23. HEPARIN CALCIUM [Suspect]
     Active Substance: HEPARIN CALCIUM
     Indication: COVID-19
     Dosage: UNK
     Route: 065

REACTIONS (1)
  - Rash maculo-papular [Recovered/Resolved]
